FAERS Safety Report 16677278 (Version 1)
Quarter: 2019Q3

REPORT INFORMATION
  Report Type: Spontaneous
  Country: AU (occurrence: AU)
  Receive Date: 20190807
  Receipt Date: 20190807
  Transmission Date: 20191004
  Serious: Yes (Other)
  Sender: FDA-Public Use
  Company Number: AU-LUPIN HEALTHCARE (UK) LIMITED-2019-02557

PATIENT

DRUGS (1)
  1. LEVETIRACETAM-GH 500 MG TABLETS [Suspect]
     Active Substance: LEVETIRACETAM
     Indication: SEIZURE PROPHYLAXIS
     Dosage: UNK
     Route: 065

REACTIONS (1)
  - Seizure [Unknown]
